FAERS Safety Report 6960638 (Version 12)
Quarter: 2015Q4

REPORT INFORMATION
  Report Type: Report from Study
  Country: AU (occurrence: AU)
  Receive Date: 20090403
  Receipt Date: 20151005
  Transmission Date: 20160305
  Serious: Yes (Hospitalization, Other)
  Sender: FDA-Public Use
  Company Number: PHNR2004AU01651

PATIENT
  Age: 44 Year
  Sex: Male

DRUGS (4)
  1. CLOZARIL [Suspect]
     Active Substance: CLOZAPINE
     Indication: SCHIZOPHRENIA
     Dosage: 500 MG, QD
     Route: 048
  2. CLOZARIL [Suspect]
     Active Substance: CLOZAPINE
     Dosage: 350 MG, QD
     Route: 048
     Dates: start: 19960416
  3. CLOZARIL [Suspect]
     Active Substance: CLOZAPINE
     Dosage: 300 MG, QD
     Route: 048
     Dates: start: 20040820
  4. CLOZARIL [Suspect]
     Active Substance: CLOZAPINE
     Dosage: 350 MG, QD
     Route: 048
     Dates: end: 20090610

REACTIONS (10)
  - Hypersplenism [Unknown]
  - Blood triglycerides increased [Unknown]
  - Cytopenia [Unknown]
  - Thirst [Recovering/Resolving]
  - Dizziness [Recovering/Resolving]
  - Toothache [Unknown]
  - Hepatitis C [Recovering/Resolving]
  - Type 2 diabetes mellitus [Recovering/Resolving]
  - Hyperhidrosis [Recovering/Resolving]
  - Oral infection [Recovering/Resolving]

NARRATIVE: CASE EVENT DATE: 20030401
